FAERS Safety Report 7339760-9 (Version None)
Quarter: 2011Q1

REPORT INFORMATION
  Report Type: 
  Country: None (occurrence: None)
  Receive Date: 20110309
  Receipt Date: 20110222
  Transmission Date: 20110831
  Serious: Yes (Other)
  Sender: FDA-Public Use
  Company Number: US-BAYER-201018270NA

PATIENT
  Sex: Female
  Weight: 99.773 kg

DRUGS (13)
  1. LISINOPRIL [Concomitant]
     Dosage: UNK
     Dates: start: 20070701, end: 20080501
  2. ACETAMINOPHEN AND TRAMADOL HCL [Concomitant]
     Dosage: 37.5/325 MG
     Route: 048
     Dates: start: 20071121
  3. METRONIDAZOLE [Concomitant]
     Dosage: 500 MG, UNK
     Route: 048
     Dates: start: 20080111
  4. OXAPROZIN [Concomitant]
     Dosage: 600 MG, UNK
     Route: 048
     Dates: start: 20070823
  5. FIORICET [Concomitant]
     Dosage: UNK
     Dates: start: 20070701, end: 20080901
  6. PROMETHAZINE [Concomitant]
     Dosage: 25 MG, UNK
     Route: 048
     Dates: start: 20080109
  7. NAPROXEN [Concomitant]
     Dosage: UNK
     Dates: start: 20050601
  8. HYOSCYAMINE SULFATE [Concomitant]
     Dosage: 0.125 MG, UNK
     Route: 048
     Dates: start: 20080429
  9. CYCLOBENZAPRINE [Concomitant]
     Dosage: 10 MG, UNK
     Route: 048
     Dates: start: 20070823
  10. YAZ [Suspect]
     Indication: ORAL CONTRACEPTION
     Dosage: UNK
     Route: 048
     Dates: start: 20070701
  11. CEPHALEXIN [Concomitant]
     Dosage: 500 MG, UNK
     Route: 048
     Dates: start: 20080429
  12. POTASSIUM [POTASSIUM] [Concomitant]
     Route: 042
  13. ACETAMINOPHEN AND HYDROCODONE BITARTRATE [Concomitant]
     Dosage: 7.5/500 MG
     Route: 048
     Dates: start: 20080222

REACTIONS (8)
  - THROMBOSIS [None]
  - ABDOMINAL PAIN [None]
  - ABDOMINAL PAIN UPPER [None]
  - CHOLELITHIASIS [None]
  - CHOLECYSTITIS [None]
  - VOMITING [None]
  - NAUSEA [None]
  - GALLBLADDER DISORDER [None]
